FAERS Safety Report 7960452-7 (Version None)
Quarter: 2011Q4

REPORT INFORMATION
  Report Type: 
  Country: None (occurrence: None)
  Receive Date: 20111206
  Receipt Date: 20111121
  Transmission Date: 20120403
  Serious: Yes (Other)
  Sender: FDA-Public Use
  Company Number: US-NICOBRDEVP-2011-20863

PATIENT
  Age: 35 Year
  Sex: Male
  Weight: 91 kg

DRUGS (1)
  1. OXYTROL [Suspect]
     Indication: BLADDER SPASM
     Dosage: UNK MG, UNK

REACTIONS (3)
  - ANAESTHETIC COMPLICATION NEUROLOGICAL [None]
  - DELIRIUM [None]
  - AGITATION [None]
